FAERS Safety Report 8866701 (Version 1)
Quarter: 2012Q4

REPORT INFORMATION
  Report Type: 
  Country: US (occurrence: US)
  Receive Date: 20121025
  Receipt Date: 20121025
  Transmission Date: 20130627
  Serious: No
  Sender: FDA-Public Use
  Company Number: US-AMGEN-USASP2012012986

PATIENT
  Age: 69 Year
  Sex: Female
  Weight: 60.77 kg

DRUGS (5)
  1. ENBREL [Suspect]
     Indication: PRODUCT USED FOR UNKNOWN INDICATION
     Dosage: 50 mg, qwk
     Route: 058
  2. DYAZIDE [Concomitant]
     Dosage: UNK
  3. PROTONIX [Concomitant]
     Dosage: 20 mg, UNK
  4. LIPITOR [Concomitant]
     Dosage: 10 mg, UNK
  5. LEVOTHYROXIN [Concomitant]
     Dosage: UNK

REACTIONS (2)
  - Blood immunoglobulin G increased [Unknown]
  - Blood immunoglobulin A increased [Unknown]
